FAERS Safety Report 14607064 (Version 1)
Quarter: 2018Q1

REPORT INFORMATION
  Report Type: Spontaneous
  Country: US (occurrence: US)
  Receive Date: 20180306
  Receipt Date: 20180306
  Transmission Date: 20180509
  Serious: Yes (Disabling, Other)
  Sender: FDA-Public Use
  Company Number: None

PATIENT
  Age: 58 Year
  Sex: Female
  Weight: 72.57 kg

DRUGS (15)
  1. CARBIDOPA/LEVADOPA 10/100 GTT [Concomitant]
     Active Substance: CARBIDOPA\LEVODOPA
  2. GABAPENTIN 300MG CAPSULES [Suspect]
     Active Substance: GABAPENTIN
     Indication: NEURALGIA
     Route: 048
     Dates: start: 20171101, end: 20171126
  3. GABAPENTIN 300MG CAPSULES [Suspect]
     Active Substance: GABAPENTIN
     Indication: CARBON MONOXIDE POISONING
     Route: 048
     Dates: start: 20171101, end: 20171126
  4. HCTZ [Concomitant]
     Active Substance: HYDROCHLOROTHIAZIDE
  5. VERAPAMIL [Concomitant]
     Active Substance: VERAPAMIL HYDROCHLORIDE
  6. CAMBIA [Concomitant]
     Active Substance: DICLOFENAC POTASSIUM
  7. GRALISE [Concomitant]
     Active Substance: GABAPENTIN
  8. OMEPRAZOLE. [Concomitant]
     Active Substance: OMEPRAZOLE
  9. GABAPENTIN 300MG CAPSULES [Suspect]
     Active Substance: GABAPENTIN
     Indication: HEADACHE
     Route: 048
     Dates: start: 20171101, end: 20171126
  10. ACTUATION INHALER [Concomitant]
  11. ALBUTEROL. [Concomitant]
     Active Substance: ALBUTEROL
  12. ESCITALOPRAM OXALATE. [Concomitant]
     Active Substance: ESCITALOPRAM OXALATE
  13. IBUPROFEN. [Concomitant]
     Active Substance: IBUPROFEN
  14. TROKENDI XR [Concomitant]
     Active Substance: TOPIRAMATE
  15. GABAPENTIN 300MG CAPSULES [Suspect]
     Active Substance: GABAPENTIN
     Indication: SEIZURE
     Route: 048
     Dates: start: 20171101, end: 20171126

REACTIONS (9)
  - Neuropathy peripheral [None]
  - Balance disorder [None]
  - Insurance issue [None]
  - Nausea [None]
  - Product substitution issue [None]
  - Headache [None]
  - Dizziness [None]
  - Visual impairment [None]
  - Drug ineffective [None]

NARRATIVE: CASE EVENT DATE: 20171101
